FAERS Safety Report 9851132 (Version 2)
Quarter: 2014Q1

REPORT INFORMATION
  Report Type: Spontaneous
  Country: ES (occurrence: ES)
  Receive Date: 20140128
  Receipt Date: 20140325
  Transmission Date: 20141002
  Serious: Yes (Death, Hospitalization, Other)
  Sender: FDA-Public Use
  Company Number: US-ASTRAZENECA-2014SE05494

PATIENT
  Age: 7 Month
  Sex: Male
  Weight: 6 kg

DRUGS (5)
  1. SYNAGIS [Suspect]
     Indication: ANTIVIRAL PROPHYLAXIS
     Route: 030
     Dates: start: 201310, end: 20131212
  2. SYNAGIS [Suspect]
     Indication: HEART DISEASE CONGENITAL
     Route: 030
     Dates: start: 201310, end: 20131212
  3. SYNAGIS [Suspect]
     Indication: HAEMODYNAMIC INSTABILITY
     Route: 030
     Dates: start: 201310, end: 20131212
  4. DIGITAL [Concomitant]
     Indication: CARDIAC FAILURE CONGESTIVE
     Route: 048
     Dates: start: 20130531, end: 20140114
  5. FUROSEMIDE [Concomitant]
     Indication: CARDIAC FAILURE CONGESTIVE
     Route: 048
     Dates: start: 20130531, end: 20140114

REACTIONS (4)
  - Respiratory syncytial virus bronchiolitis [Fatal]
  - Pulmonary hypertension [Fatal]
  - Cardio-respiratory arrest [Fatal]
  - Drug ineffective [Fatal]
